FAERS Safety Report 18301805 (Version 1)
Quarter: 2020Q3

REPORT INFORMATION
  Report Type: Spontaneous
  Country: GB (occurrence: GB)
  Receive Date: 20200923
  Receipt Date: 20200923
  Transmission Date: 20201103
  Serious: Yes (Hospitalization, Other)
  Sender: FDA-Public Use
  Company Number: GB-PFIZER INC-2020363942

PATIENT
  Age: 63 Year
  Sex: Female
  Weight: 75 kg

DRUGS (11)
  1. FYBOGEL [Concomitant]
     Active Substance: PLANTAGO OVATA SEED
     Dosage: 3.5 G, DAILY, SACHETS
     Dates: start: 20200813
  2. RABEPRAZOLE [Concomitant]
     Active Substance: RABEPRAZOLE
     Dosage: 40 MG, DAILY
     Dates: start: 20200805, end: 20200828
  3. DOXAZOSIN MESILATE [Suspect]
     Active Substance: DOXAZOSIN MESYLATE
     Indication: HYPERTENSION
     Dosage: 2 MG, DAILY
     Route: 048
     Dates: start: 20200828
  4. PREGABALIN. [Concomitant]
     Active Substance: PREGABALIN
     Dosage: 50 MG, DAILY
     Dates: start: 20200702
  5. CIMETIDINE [Concomitant]
     Active Substance: CIMETIDINE
     Dosage: UNK, ONCE OR TWICE DAILY 200MG/5M
     Dates: start: 20200604, end: 20200828
  6. SERTRALINE [Concomitant]
     Active Substance: SERTRALINE HYDROCHLORIDE
     Dosage: 50 MG, DAILY
     Dates: start: 20200813
  7. CLONAZEPAM. [Concomitant]
     Active Substance: CLONAZEPAM
     Dosage: 500 UG, DAILY AT  NIGHT
     Dates: start: 20200716
  8. CO?DYDRAMOL [Concomitant]
     Active Substance: ACETAMINOPHEN\DIHYDROCODEINE
     Dosage: UNK, TAKE 1 OR 2 TABS 4 TIMES/DAY MAX 8 IN 24HRS 10MG/500MG
     Dates: start: 20200625, end: 20200828
  9. VAGIFEM [Concomitant]
     Active Substance: ESTRADIOL
     Dosage: 10 UG, NIGHTLY
     Dates: start: 20200828
  10. PIZOTIFEN [Concomitant]
     Active Substance: PIZOTYLINE
     Dosage: 500 UG, AT  NIGHT
     Dates: start: 20200619
  11. OMEGA?3?ACID ETHYL ESTER [Concomitant]
     Active Substance: OMEGA-3-ACID ETHYL ESTERS
     Dosage: 2000 MG, DAILY
     Dates: start: 20200623

REACTIONS (1)
  - Chest pain [Recovering/Resolving]

NARRATIVE: CASE EVENT DATE: 20200828
